FAERS Safety Report 25847345 (Version 1)
Quarter: 2025Q3

REPORT INFORMATION
  Report Type: Spontaneous
  Country: US (occurrence: US)
  Receive Date: 20250925
  Receipt Date: 20250925
  Transmission Date: 20251021
  Serious: No
  Sender: BAYER HEALTHCARE PHARMACEUTICALS INC.
  Company Number: US-BAYER-2025A125521

PATIENT
  Age: 8 Year
  Sex: Male

DRUGS (17)
  1. SORAFENIB [Suspect]
     Active Substance: SORAFENIB
     Indication: Acute myeloid leukaemia
  2. CYTARABINE [Concomitant]
     Active Substance: CYTARABINE
  3. DAUNORUBICIN [Concomitant]
     Active Substance: DAUNORUBICIN
  4. ETOPOSIDE [Concomitant]
     Active Substance: ETOPOSIDE
  5. Gemtu [Concomitant]
  6. METHOTREXATE [Concomitant]
     Active Substance: METHOTREXATE
  7. HYDROCORTISONE [Concomitant]
     Active Substance: HYDROCORTISONE
  8. CYTARABINE [Concomitant]
     Active Substance: CYTARABINE
  9. BUSULFAN [Concomitant]
     Active Substance: BUSULFAN
     Indication: Acute myeloid leukaemia
  10. FLUDARABINE [Concomitant]
     Active Substance: FLUDARABINE PHOSPHATE
     Indication: Acute myeloid leukaemia
  11. CYCLOPHOSPHAMIDE [Concomitant]
     Active Substance: CYCLOPHOSPHAMIDE
     Indication: Acute myeloid leukaemia
  12. LYMPHOCYTES [Concomitant]
     Active Substance: LYMPHOCYTES
  13. IDARUBICIN [Concomitant]
     Active Substance: IDARUBICIN
  14. VENETOCLAX [Concomitant]
     Active Substance: VENETOCLAX
  15. REMICADE [Concomitant]
     Active Substance: INFLIXIMAB
     Indication: Chronic graft versus host disease
  16. BUDESONIDE [Concomitant]
     Active Substance: BUDESONIDE
     Indication: Chronic graft versus host disease
  17. RUXOLITINIB [Concomitant]
     Active Substance: RUXOLITINIB
     Indication: Chronic graft versus host disease

REACTIONS (3)
  - Product use in unapproved indication [None]
  - Product prescribing issue [None]
  - Product use issue [None]
